FAERS Safety Report 18117579 (Version 1)
Quarter: 2020Q3

REPORT INFORMATION
  Report Type: Spontaneous
  Country: US (occurrence: US)
  Receive Date: 20200806
  Receipt Date: 20200806
  Transmission Date: 20201103
  Serious: Yes (Life-Threatening, Hospitalization, Other)
  Sender: FDA-Public Use
  Company Number: US-SUN PHARMACEUTICAL INDUSTRIES LTD-2020R1-255443

PATIENT
  Age: 56 Year
  Sex: Male

DRUGS (3)
  1. TACROLIMUS. [Suspect]
     Active Substance: TACROLIMUS
     Indication: IMMUNOSUPPRESSION
     Dosage: 5?8 MICROGRAM/ L
     Route: 065
  2. PREDNISONE. [Suspect]
     Active Substance: PREDNISONE
     Indication: IMMUNOSUPPRESSION
     Dosage: 5 MILLIGRAM, DAILY
     Route: 065
  3. MYCOPHENOLATE MOFETIL. [Suspect]
     Active Substance: MYCOPHENOLATE MOFETIL
     Indication: IMMUNOSUPPRESSION
     Dosage: UNK
     Route: 065

REACTIONS (13)
  - Staphylococcal infection [Unknown]
  - Renal tubular necrosis [Unknown]
  - Morganella infection [Unknown]
  - Respiratory failure [Recovering/Resolving]
  - Failure to thrive [Recovering/Resolving]
  - Malnutrition [Unknown]
  - Staphylococcal bacteraemia [Unknown]
  - Pneumonia klebsiella [Unknown]
  - Polyomavirus viraemia [Not Recovered/Not Resolved]
  - Corynebacterium infection [Unknown]
  - Bacterial disease carrier [Unknown]
  - Stenotrophomonas infection [Unknown]
  - COVID-19 [Recovered/Resolved]
